FAERS Safety Report 13940950 (Version 1)
Quarter: 2017Q3

REPORT INFORMATION
  Report Type: Spontaneous
  Country: FR (occurrence: FR)
  Receive Date: 20170906
  Receipt Date: 20170906
  Transmission Date: 20171127
  Serious: Yes (Hospitalization)
  Sender: FDA-Public Use
  Company Number: FR-ASTRAZENECA-2017SE90025

PATIENT
  Age: 28864 Day
  Sex: Male

DRUGS (3)
  1. IRESSA [Suspect]
     Active Substance: GEFITINIB
     Indication: LUNG ADENOCARCINOMA
     Route: 048
     Dates: start: 20170320, end: 20170809
  2. BISOPROLOL [Suspect]
     Active Substance: BISOPROLOL
     Dosage: BISOPROLOL (FUMARATE ACID OF)
     Route: 048
     Dates: start: 201704
  3. RANITIDINE. [Suspect]
     Active Substance: RANITIDINE
     Dosage: RANITIDINE BASE 150 MG EVERY DAY
     Route: 048
     Dates: start: 201704

REACTIONS (1)
  - Cholestasis [Not Recovered/Not Resolved]

NARRATIVE: CASE EVENT DATE: 20170503
